FAERS Safety Report 18650256 (Version 2)
Quarter: 2021Q1

REPORT INFORMATION
  Report Type: Spontaneous
  Country: US (occurrence: US)
  Receive Date: 20201222
  Receipt Date: 20210201
  Transmission Date: 20210419
  Serious: Yes (Other)
  Sender: FDA-Public Use
  Company Number: US-ELI_LILLY_AND_COMPANY-US202012008963

PATIENT
  Sex: Female

DRUGS (1)
  1. EMGALITY [Suspect]
     Active Substance: GALCANEZUMAB-GNLM
     Indication: PRODUCT USED FOR UNKNOWN INDICATION
     Dosage: 120 MG, UNKNOWN
     Route: 065
     Dates: end: 202010

REACTIONS (10)
  - Heart rate increased [Unknown]
  - Hypoaesthesia [Unknown]
  - Blood pressure decreased [Unknown]
  - Asthenia [Unknown]
  - Constipation [Unknown]
  - Paraesthesia [Unknown]
  - Alopecia [Unknown]
  - Vertigo [Unknown]
  - Blood pressure increased [Unknown]
  - Dizziness [Recovering/Resolving]
